FAERS Safety Report 23057431 (Version 3)
Quarter: 2024Q1

REPORT INFORMATION
  Report Type: Spontaneous
  Country: FR (occurrence: FR)
  Receive Date: 20231012
  Receipt Date: 20240216
  Transmission Date: 20240410
  Serious: Yes (Other)
  Sender: FDA-Public Use
  Company Number: FR-SANDOZ-SDZ2023FR039129

PATIENT
  Age: 56 Year
  Sex: Female

DRUGS (12)
  1. AZACITIDINE [Suspect]
     Active Substance: AZACITIDINE
     Indication: Chronic leukaemia
     Dosage: UNK, 18 CYCLES
     Route: 065
  2. BORTEZOMIB [Suspect]
     Active Substance: BORTEZOMIB
     Indication: Chronic leukaemia
     Dosage: UNK
     Route: 065
  3. BORTEZOMIB [Suspect]
     Active Substance: BORTEZOMIB
     Indication: Plasma cell disorder
     Dosage: UNK UNK, CYCLIC (3 CYCLES)
     Route: 065
  4. CYCLOPHOSPHAMIDE [Suspect]
     Active Substance: CYCLOPHOSPHAMIDE
     Indication: Chronic leukaemia
     Dosage: UNK
     Route: 065
  5. CYCLOPHOSPHAMIDE [Suspect]
     Active Substance: CYCLOPHOSPHAMIDE
     Indication: Plasma cell disorder
  6. CARFILZOMIB [Suspect]
     Active Substance: CARFILZOMIB
     Indication: Chronic leukaemia
     Dosage: UNK
     Route: 065
  7. CARFILZOMIB [Suspect]
     Active Substance: CARFILZOMIB
     Indication: Plasma cell disorder
  8. DASATINIB [Suspect]
     Active Substance: DASATINIB
     Indication: Chronic leukaemia
     Route: 065
  9. DARATUMUMAB [Suspect]
     Active Substance: DARATUMUMAB
     Indication: Product used for unknown indication
     Dosage: UNK
     Route: 065
  10. DEXAMETHASONE [Suspect]
     Active Substance: DEXAMETHASONE
     Indication: Chronic leukaemia
     Dosage: UNK
     Route: 065
  11. DEXAMETHASONE [Suspect]
     Active Substance: DEXAMETHASONE
     Indication: Plasma cell disorder
     Dosage: UNKUNK, CYCLIC (3 CYCLES)
     Route: 065
  12. RUXOLITINIB [Suspect]
     Active Substance: RUXOLITINIB
     Indication: Chronic leukaemia
     Dosage: UNK
     Route: 065

REACTIONS (9)
  - Hypergammaglobulinaemia benign monoclonal [Unknown]
  - Disease progression [Unknown]
  - Thrombocytopenia [Unknown]
  - Leukocytosis [Unknown]
  - Therapeutic product effect incomplete [Unknown]
  - Oedema peripheral [Unknown]
  - Drug ineffective [Unknown]
  - Off label use [Unknown]
  - Adverse event [Unknown]
